FAERS Safety Report 6075513-X (Version None)
Quarter: 2009Q1

REPORT INFORMATION
  Report Type: 
  Country: None (occurrence: None)
  Receive Date: 20090210
  Receipt Date: 20090210
  Transmission Date: 20090719
  Serious: Yes (Hospitalization)
  Sender: FDA-Public Use
  Company Number: None

PATIENT
  Age: 55 Year
  Sex: Female
  Weight: 65.7716 kg

DRUGS (1)
  1. CYMBALTA [Suspect]
     Indication: PAIN
     Dosage: 30MG PILL 1 PO
     Route: 048
     Dates: start: 20090206, end: 20090206

REACTIONS (6)
  - AGITATION [None]
  - CRYING [None]
  - DYSPNOEA [None]
  - HALLUCINATION [None]
  - HYPOAESTHESIA ORAL [None]
  - STARING [None]
